FAERS Safety Report 23473354 (Version 1)
Quarter: 2024Q1

REPORT INFORMATION
  Report Type: Spontaneous
  Country: US (occurrence: US)
  Receive Date: 20240203
  Receipt Date: 20240203
  Transmission Date: 20240410
  Serious: No
  Sender: FDA-Public Use
  Company Number: US-ABBVIE-5612639

PATIENT
  Sex: Male

DRUGS (1)
  1. HUMIRA [Suspect]
     Active Substance: ADALIMUMAB
     Indication: Product used for unknown indication
     Route: 058

REACTIONS (7)
  - Swelling [Unknown]
  - Erythema [Unknown]
  - Joint swelling [Unknown]
  - Pruritus [Unknown]
  - Arthralgia [Unknown]
  - Joint warmth [Unknown]
  - Pain [Unknown]
